FAERS Safety Report 8245313-0 (Version None)
Quarter: 2012Q1

REPORT INFORMATION
  Report Type: 
  Country: None (occurrence: None)
  Receive Date: 20120329
  Receipt Date: 20120321
  Transmission Date: 20120608
  Serious: Yes (Hospitalization, Other)
  Sender: FDA-Public Use
  Company Number: US-ELI_LILLY_AND_COMPANY-US201202001207

PATIENT
  Sex: Female

DRUGS (10)
  1. FORTEO [Suspect]
     Dosage: 20 UG, QD
     Route: 065
     Dates: end: 20120226
  2. MULTI-VITAMINS [Concomitant]
  3. LEVOXYL [Concomitant]
  4. TOPROL-XL [Concomitant]
  5. ASPIRIN [Concomitant]
  6. FORTEO [Suspect]
     Indication: OSTEOPOROSIS
     Dosage: 20 UG, QD
     Route: 065
     Dates: start: 20120101
  7. FORTEO [Suspect]
     Dosage: 20 UG, QD
  8. HYDROCORTISONE [Concomitant]
  9. FISH OIL [Concomitant]
  10. CITRUCEL [Concomitant]

REACTIONS (9)
  - HAEMORRHAGE [None]
  - INJECTION SITE HAEMATOMA [None]
  - INJURY ASSOCIATED WITH DEVICE [None]
  - UPPER LIMB FRACTURE [None]
  - FALL [None]
  - PELVIC FRACTURE [None]
  - HOSPITALISATION [None]
  - PAIN IN EXTREMITY [None]
  - HIP FRACTURE [None]
